FAERS Safety Report 4927921-5 (Version None)
Quarter: 2006Q1

REPORT INFORMATION
  Report Type: 
  Country: None (occurrence: None)
  Receive Date: 20060223
  Receipt Date: 20060209
  Transmission Date: 20060701
  Serious: Yes (Hospitalization, Other)
  Sender: FDA-Public Use
  Company Number: HQWYE257506SEP05

PATIENT
  Age: 64 Year
  Sex: Male

DRUGS (14)
  1. RAPAMUNE [Suspect]
     Indication: PROPHYLAXIS AGAINST TRANSPLANT REJECTION
     Dosage: 3.5 MG 1X PER 1 DAY ORAL
     Route: 048
     Dates: start: 20050216
  2. PANTOPRAZOLE SODIUM [Concomitant]
  3. METROZINE (METRONIDAZOLE) [Concomitant]
  4. COLECALCIFEROL (COLECALCIFEROL) [Concomitant]
  5. CALCIUM (CALCIUM) [Concomitant]
  6. PREDNISOLONE [Concomitant]
  7. FOSAMAX [Concomitant]
  8. BLOPRESS (CANDESARTAN CILEXETIL) [Concomitant]
  9. FERRO SANOL (AMINOACETIC ACID/FERROUS SULFATE) [Concomitant]
  10. INSULIN [Concomitant]
  11. AZULFIDINE [Concomitant]
  12. AZATHIOPRINE [Concomitant]
  13. TERAZOSIN (TERAZOSIN) [Concomitant]
  14. VITAMIN D [Concomitant]

REACTIONS (3)
  - BLOOD CREATININE INCREASED [None]
  - COLITIS ULCERATIVE [None]
  - PYREXIA [None]
